FAERS Safety Report 4866744-2 (Version None)
Quarter: 2005Q4

REPORT INFORMATION
  Report Type: 
  Country: None (occurrence: None)
  Receive Date: 20051221
  Receipt Date: 20051205
  Transmission Date: 20060501
  Serious: Yes (Other)
  Sender: FDA-Public Use
  Company Number: L05-NLD-05636-02

PATIENT
  Age: 31 Year
  Sex: Male
  Weight: 85 kg

DRUGS (4)
  1. CARBAMAZEPINE [Suspect]
     Indication: EPILEPSY
     Dosage: UNK
     Route: 065
  2. PHENOBARBITAL [Suspect]
     Indication: EPILEPSY
     Dosage: UNK
  3. PHENYTOIN [Suspect]
     Indication: EPILEPSY
     Dosage: UNK
     Route: 065
  4. VALPROIC ACID [Suspect]
     Indication: EPILEPSY
     Dosage: UNK
     Route: 065

REACTIONS (8)
  - BACK PAIN [None]
  - BONE DISORDER [None]
  - BONE PAIN [None]
  - GRAND MAL CONVULSION [None]
  - OSTEOLYSIS [None]
  - OSTEOPENIA [None]
  - OSTEOPOROSIS [None]
  - URINE ANALYSIS ABNORMAL [None]
